FAERS Safety Report 8152843-9 (Version None)
Quarter: 2012Q1

REPORT INFORMATION
  Report Type: 
  Country: None (occurrence: None)
  Receive Date: 20120221
  Receipt Date: 20120209
  Transmission Date: 20120608
  Serious: Yes (Other)
  Sender: FDA-Public Use
  Company Number: US-JNJFOC-20120206140

PATIENT
  Sex: Female
  Weight: 42.64 kg

DRUGS (1)
  1. REMICADE [Suspect]
     Indication: RHEUMATOID ARTHRITIS
     Route: 042

REACTIONS (5)
  - DYSPNOEA [None]
  - ADVERSE EVENT [None]
  - RESPIRATORY DISORDER [None]
  - MALAISE [None]
  - COUGH [None]
